FAERS Safety Report 13258490 (Version 2)
Quarter: 2017Q1

REPORT INFORMATION
  Report Type: Spontaneous
  Country: US (occurrence: US)
  Receive Date: 20170222
  Receipt Date: 20170306
  Transmission Date: 20170428
  Serious: No
  Sender: FDA-Public Use
  Company Number: US-IMPAX LABORATORIES, INC-2017-IPXL-00407

PATIENT
  Age: 54 Year
  Sex: Male
  Weight: 70 kg

DRUGS (3)
  1. MIRAPEX [Concomitant]
     Active Substance: PRAMIPEXOLE DIHYDROCHLORIDE
     Indication: PRODUCT USED FOR UNKNOWN INDICATION
     Dosage: UNK
     Route: 065
  2. AMANTADINE [Concomitant]
     Active Substance: AMANTADINE
     Indication: PRODUCT USED FOR UNKNOWN INDICATION
     Dosage: UNK
     Route: 065
  3. RYTARY [Suspect]
     Active Substance: CARBIDOPA\LEVODOPA
     Indication: PARKINSON^S DISEASE
     Dosage: 61.25/245 MG, 2 CAPSULES, 4 TIMES DAILY
     Route: 048
     Dates: start: 201612

REACTIONS (4)
  - Pain [Unknown]
  - Road traffic accident [Unknown]
  - Musculoskeletal stiffness [Unknown]
  - Musculoskeletal discomfort [Unknown]

NARRATIVE: CASE EVENT DATE: 2017
